FAERS Safety Report 4802457-0 (Version None)
Quarter: 2005Q4

REPORT INFORMATION
  Report Type: 
  Country: None (occurrence: None)
  Receive Date: 20051011
  Receipt Date: 20050608
  Transmission Date: 20060501
  Serious: Yes (Other)
  Sender: FDA-Public Use
  Company Number: 2005086540

PATIENT
  Sex: Male

DRUGS (3)
  1. VIAGRA [Suspect]
     Indication: ILL-DEFINED DISORDER
  2. METAMUCIL ^PROCTER + GAMBLE (GLUCOSE MONOHYDRATE ISAPHAGULA HUSK) [Concomitant]
  3. FLEXERIL [Concomitant]

REACTIONS (2)
  - CHORIORETINAL DISORDER [None]
  - MYOPIA [None]
